FAERS Safety Report 17669623 (Version 1)
Quarter: 2020Q2

REPORT INFORMATION
  Report Type: Report from Study
  Country: US (occurrence: US)
  Receive Date: 20200415
  Receipt Date: 20200415
  Transmission Date: 20200713
  Serious: Yes (Other)
  Sender: FDA-Public Use
  Company Number: US-MYLANLABS-2020M1037159

PATIENT
  Age: 28 Year
  Sex: Male
  Weight: 149.7 kg

DRUGS (3)
  1. MORPHINE [Concomitant]
     Active Substance: MORPHINE
     Indication: PRODUCT USED FOR UNKNOWN INDICATION
     Dosage: 4 MILLIGRAM
     Route: 042
  2. KETAMINE [Suspect]
     Active Substance: KETAMINE
     Indication: SEDATIVE THERAPY
     Dosage: 0.17 MILLIGRAM/KILOGRAM
     Route: 042
  3. KETAMINE [Suspect]
     Active Substance: KETAMINE
     Indication: PAIN

REACTIONS (1)
  - Respiratory disorder [Unknown]
